FAERS Safety Report 9334798 (Version 2)
Quarter: 2013Q2

REPORT INFORMATION
  Report Type: Spontaneous
  Country: BR (occurrence: BR)
  Receive Date: 20130606
  Receipt Date: 20130612
  Transmission Date: 20140414
  Serious: Yes (Other)
  Sender: FDA-Public Use
  Company Number: BR-ASTRAZENECA-2013SE38207

PATIENT
  Age: 69 Year
  Sex: Male
  Weight: 89 kg

DRUGS (2)
  1. CRESTOR [Suspect]
     Indication: BLOOD CHOLESTEROL ABNORMAL
     Route: 048
     Dates: start: 2012
  2. CLOPIDOGREL [Suspect]
     Indication: ANGIOPLASTY
     Route: 065
     Dates: end: 201305

REACTIONS (2)
  - Eye haemorrhage [Recovered/Resolved]
  - Gastritis erosive [Unknown]
